FAERS Safety Report 5055011-2 (Version None)
Quarter: 2006Q3

REPORT INFORMATION
  Report Type: 
  Country: None (occurrence: None)
  Receive Date: 20060719
  Receipt Date: 20051031
  Transmission Date: 20061208
  Serious: Yes (Death)
  Sender: FDA-Public Use
  Company Number: 2005AP05633

PATIENT
  Age: 7026 Day
  Sex: Male

DRUGS (55)
  1. FOSCAVIR [Suspect]
     Indication: MYELODYSPLASTIC SYNDROME
     Route: 042
     Dates: start: 20051007, end: 20051028
  2. DIPRIVAN [Concomitant]
     Route: 042
     Dates: start: 20051018, end: 20051030
  3. FUNGIZONE [Concomitant]
     Dates: start: 20051013, end: 20051103
  4. ITRACONAZOLE [Concomitant]
     Route: 048
     Dates: start: 20051018, end: 20051106
  5. MEROPEN [Concomitant]
     Route: 041
     Dates: start: 20051013, end: 20051103
  6. MAXIPIME [Concomitant]
     Route: 041
     Dates: start: 20051007, end: 20051013
  7. MINOCYCLINE HCL [Concomitant]
     Route: 041
     Dates: start: 20051021, end: 20051104
  8. VFEND [Concomitant]
     Route: 048
     Dates: start: 20051012, end: 20051018
  9. PHENOBAL [Concomitant]
     Route: 048
     Dates: start: 20051017, end: 20051031
  10. TEGRETOL [Concomitant]
     Route: 048
     Dates: start: 20051009, end: 20051018
  11. TEGRETOL [Concomitant]
     Route: 048
     Dates: start: 20051012, end: 20051023
  12. DEPAKENE [Concomitant]
     Route: 048
     Dates: start: 20051017, end: 20051023
  13. MYSTAN [Concomitant]
     Route: 048
     Dates: start: 20051021, end: 20051031
  14. ENTERONON-R [Concomitant]
     Route: 048
     Dates: start: 20051018, end: 20051106
  15. CRAVIT [Concomitant]
     Dates: start: 20051029, end: 20051029
  16. HYALEIN [Concomitant]
     Dates: start: 20051029, end: 20051029
  17. DORMICUM [Concomitant]
     Dates: start: 20051012, end: 20051101
  18. HORIZON [Concomitant]
     Dates: start: 20051020, end: 20051025
  19. ALEVIATIN [Concomitant]
     Dates: start: 20051008, end: 20051029
  20. ROPION [Concomitant]
     Dates: start: 20051007, end: 20051023
  21. INOVAN [Concomitant]
     Dates: start: 20051023, end: 20051105
  22. SOLDACTONE [Concomitant]
     Dates: start: 20051024, end: 20051104
  23. LASIX [Concomitant]
     Dates: start: 20051021, end: 20051105
  24. HANP [Concomitant]
     Dates: start: 20051017, end: 20051105
  25. GLYCEOL [Concomitant]
     Dates: start: 20051028, end: 20051102
  26. BISOLVON [Concomitant]
     Dates: start: 20051016, end: 20051104
  27. GASTER [Concomitant]
     Dates: start: 20051007, end: 20051105
  28. SOLU-MEDROL [Concomitant]
     Dates: start: 20051028, end: 20051030
  29. SOLU-MEDROL [Concomitant]
     Dates: start: 20051031, end: 20051101
  30. NOR-ADRENALIN [Concomitant]
     Dates: start: 20051028, end: 20051103
  31. HYDROCORTONE [Concomitant]
     Dates: start: 20051008, end: 20051103
  32. NOVOLIN R [Concomitant]
     Dates: start: 20051007, end: 20051102
  33. MULTAMIN [Concomitant]
     Dates: start: 20051026, end: 20051105
  34. ELEMENMIC [Concomitant]
     Dates: start: 20051007, end: 20051105
  35. GLUCOSE [Concomitant]
     Dates: start: 20051013, end: 20051105
  36. GLUCOSE [Concomitant]
     Dates: start: 20051015, end: 20051025
  37. GLUCOSE [Concomitant]
     Dates: start: 20051017, end: 20051028
  38. GLUCOSE [Concomitant]
     Dates: start: 20051017, end: 20051103
  39. GLUCOSE [Concomitant]
     Dates: start: 20051008, end: 20051103
  40. GLUCOSE [Concomitant]
     Dates: start: 20051028, end: 20051104
  41. HICALIQ RF [Concomitant]
     Route: 042
     Dates: start: 20051026, end: 20051105
  42. NEOAMIYU [Concomitant]
     Dates: start: 20051026, end: 20051105
  43. NORMAL SALINE INJECTION [Concomitant]
     Dates: start: 20051007, end: 20051027
  44. NORMAL SALINE INJECTION [Concomitant]
     Dates: start: 20051007, end: 20051105
  45. ISOTONIC SODIUM CHLORIDE SOLUTION [Concomitant]
     Dates: start: 20051007, end: 20051101
  46. ISOTONIC SODIUM CHLORIDE SOLUTION [Concomitant]
     Dates: start: 20051008, end: 20051105
  47. SOLULACT [Concomitant]
     Dates: start: 20051016, end: 20051105
  48. MEDIJECT K [Concomitant]
     Dates: start: 20051014, end: 20051104
  49. HEPARIN SODIUM [Concomitant]
     Dates: start: 20051007, end: 20051105
  50. GRAN [Concomitant]
     Dates: start: 20051008, end: 20051103
  51. FULCALIQ 3 [Concomitant]
     Dates: start: 20051007, end: 20051025
  52. PROGRAF [Concomitant]
     Dates: start: 20051008, end: 20051018
  53. IMMUNE GLOBULIN INTRAVENOUS (HUMAN) [Concomitant]
     Dates: start: 20051009, end: 20051015
  54. ALBUMINAR [Concomitant]
     Dates: start: 20051023, end: 20051028
  55. WATER FOR INJECTION [Concomitant]
     Dates: start: 20051017, end: 20051105

REACTIONS (1)
  - ENCEPHALITIS VIRAL [None]
